FAERS Safety Report 13286022 (Version 1)
Quarter: 2017Q1

REPORT INFORMATION
  Report Type: Spontaneous
  Country: US (occurrence: US)
  Receive Date: 20170301
  Receipt Date: 20170301
  Transmission Date: 20170428
  Serious: Yes (Other)
  Sender: FDA-Public Use
  Company Number: US-CELGENEUS-USA-2017027294

PATIENT

DRUGS (5)
  1. VIDAZA [Suspect]
     Active Substance: AZACITIDINE
     Indication: ACUTE MYELOID LEUKAEMIA
     Dosage: 75 MG/M2
     Route: 065
  2. PEVONEDISTAT [Suspect]
     Active Substance: PEVONEDISTAT
     Indication: ACUTE MYELOID LEUKAEMIA
     Dosage: 147 MG/M2
     Route: 041
  3. PEVONEDISTAT [Suspect]
     Active Substance: PEVONEDISTAT
     Indication: MYELODYSPLASTIC SYNDROME
     Dosage: 45 MG/M2
     Route: 041
  4. VIDAZA [Suspect]
     Active Substance: AZACITIDINE
     Indication: MYELODYSPLASTIC SYNDROME
     Dosage: 50 MG/M2
     Route: 065
  5. PEVONEDISTAT [Suspect]
     Active Substance: PEVONEDISTAT
     Dosage: 44 MG/M2
     Route: 041

REACTIONS (2)
  - Myocardial infarction [Unknown]
  - Dyspnoea [Unknown]
